FAERS Safety Report 13329527 (Version 1)
Quarter: 2017Q1

REPORT INFORMATION
  Report Type: Other
  Country: SA (occurrence: SA)
  Receive Date: 20170313
  Receipt Date: 20170313
  Transmission Date: 20170428
  Serious: Yes (Other)
  Sender: FDA-Public Use
  Company Number: SA-DEXPHARM-20170305

PATIENT
  Age: 24 Year
  Sex: Female

DRUGS (1)
  1. TABIFLEX [Suspect]
     Active Substance: DICLOFENAC

REACTIONS (5)
  - Drug dispensing error [None]
  - Wrong drug administered [None]
  - Keratitis [Recovered/Resolved]
  - Eyelid oedema [None]
  - Conjunctival hyperaemia [None]
